FAERS Safety Report 21091278 (Version 3)
Quarter: 2022Q4

REPORT INFORMATION
  Report Type: Spontaneous
  Country: US (occurrence: US)
  Receive Date: 20220716
  Receipt Date: 20221013
  Transmission Date: 20230112
  Serious: Yes (Other)
  Sender: FDA-Public Use
  Company Number: US-NOVARTISPH-NVSC2022US158975

PATIENT
  Sex: Female

DRUGS (1)
  1. ENTRESTO [Suspect]
     Active Substance: SACUBITRIL\VALSARTAN
     Indication: Product used for unknown indication
     Dosage: UNK
     Route: 065

REACTIONS (7)
  - Ejection fraction decreased [Unknown]
  - Syncope [Unknown]
  - Depressed mood [Unknown]
  - Nervousness [Unknown]
  - Blood glucose decreased [Unknown]
  - Condition aggravated [Unknown]
  - Hypotension [Unknown]
